FAERS Safety Report 5126449-X (Version None)
Quarter: 2006Q4

REPORT INFORMATION
  Report Type: 
  Country: None (occurrence: None)
  Receive Date: 20061010
  Receipt Date: 20060927
  Transmission Date: 20070319
  Serious: Yes (Hospitalization)
  Sender: FDA-Public Use
  Company Number: 2006120258

PATIENT
  Sex: Female

DRUGS (2)
  1. CELEBREX [Suspect]
     Dosage: ORAL
     Route: 048
     Dates: start: 19990930
  2. VIOXX [Suspect]
     Dosage: ORAL
     Route: 048
     Dates: start: 20030103

REACTIONS (2)
  - PULMONARY EMBOLISM [None]
  - THROMBOSIS [None]
